FAERS Safety Report 10076118 (Version 2)
Quarter: 2014Q2

REPORT INFORMATION
  Report Type: Spontaneous
  Country: US (occurrence: None)
  Receive Date: 20140410
  Receipt Date: 20140501
  Transmission Date: 20141212
  Serious: Yes (Other)
  Sender: FDA-Public Use
  Company Number: BR14-112-AE

PATIENT
  Age: 27 Year
  Sex: Female
  Weight: 74.84 kg

DRUGS (14)
  1. OXY / APAP [Suspect]
     Indication: PAIN
     Dosage: 4 TABLETS A DAY, ORAL
  2. FLEXERIL [Concomitant]
  3. HCB / APAP [Concomitant]
  4. METFORMIN [Concomitant]
  5. AMBIEN [Concomitant]
  6. LEVOTHYROXINE [Concomitant]
  7. FERROUS SULFATE [Concomitant]
  8. INDERAL [Concomitant]
  9. BIRTH CONTROL [Concomitant]
  10. VITAMIN D [Concomitant]
  11. METFORMIN [Concomitant]
  12. PEPCID [Concomitant]
  13. TOPAMAX [Concomitant]
  14. LYRIC [Concomitant]

REACTIONS (9)
  - Confusional state [None]
  - Pruritus [None]
  - Urticaria [None]
  - Cystitis noninfective [None]
  - Bladder pain [None]
  - Dysuria [None]
  - Irritability [None]
  - Blood pressure decreased [None]
  - Heart rate increased [None]
